FAERS Safety Report 9736021 (Version 1)
Quarter: 2013Q4

REPORT INFORMATION
  Report Type: Spontaneous
  Country: DE (occurrence: DE)
  Receive Date: 20131206
  Receipt Date: 20131206
  Transmission Date: 20140711
  Serious: Yes (Other)
  Sender: FDA-Public Use
  Company Number: DE-BRISTOL-MYERS SQUIBB COMPANY-19881796

PATIENT
  Sex: 0

DRUGS (1)
  1. ERBITUX SOLN FOR INF [Suspect]
     Indication: SQUAMOUS CELL CARCINOMA OF THE ORAL CAVITY
     Route: 042

REACTIONS (1)
  - Squamous cell carcinoma of skin [Not Recovered/Not Resolved]
